FAERS Safety Report 25301269 (Version 1)
Quarter: 2025Q2

REPORT INFORMATION
  Report Type: Spontaneous
  Country: CN (occurrence: CN)
  Receive Date: 20250512
  Receipt Date: 20250512
  Transmission Date: 20250716
  Serious: Yes (Death, Life-Threatening, Other)
  Sender: PFIZER
  Company Number: CN-PFIZER INC-PV202500054578

PATIENT
  Age: 42 Year

DRUGS (9)
  1. AXITINIB [Suspect]
     Active Substance: AXITINIB
     Indication: Malignant melanoma
     Dosage: 5 MG, 2X/DAY (FOR 2 MONTHS)
     Route: 048
  2. LENVATINIB [Suspect]
     Active Substance: LENVATINIB
     Indication: Malignant melanoma
     Dosage: 8 MG, 1X/DAY
     Route: 048
     Dates: start: 202204, end: 20230403
  3. TORIPALIMAB [Suspect]
     Active Substance: TORIPALIMAB
     Indication: Malignant melanoma
     Dosage: 240 MG, EVERY 3 WEEKS
     Route: 042
     Dates: start: 202204, end: 202301
  4. OLAPARIB [Suspect]
     Active Substance: OLAPARIB
     Indication: Malignant melanoma
     Dosage: 150 MG, 2X/DAY
     Dates: start: 202204
  5. OLAPARIB [Suspect]
     Active Substance: OLAPARIB
     Dosage: UNK, DAILY (EVERY DAY WITHOUT INTERRUPTION)
     Route: 048
  6. OLAPARIB [Suspect]
     Active Substance: OLAPARIB
     Route: 048
  7. OLAPARIB [Suspect]
     Active Substance: OLAPARIB
     Dosage: UNK, DAILY
     Route: 048
     Dates: end: 20230403
  8. TEMOZOLOMIDE [Suspect]
     Active Substance: TEMOZOLOMIDE
     Indication: Malignant melanoma
     Dosage: 100 MG, 1X/DAY
     Route: 048
     Dates: start: 202301
  9. TEMOZOLOMIDE [Suspect]
     Active Substance: TEMOZOLOMIDE
     Route: 048
     Dates: end: 20230318

REACTIONS (1)
  - Drug ineffective [Fatal]
